FAERS Safety Report 13245739 (Version 1)
Quarter: 2017Q1

REPORT INFORMATION
  Report Type: Report from Study
  Country: AU (occurrence: AU)
  Receive Date: 20170217
  Receipt Date: 20170217
  Transmission Date: 20170428
  Serious: Yes (Other)
  Sender: FDA-Public Use
  Company Number: AU-BRISTOL-MYERS SQUIBB COMPANY-BMS-2017-011499

PATIENT
  Age: 53 Year
  Sex: Male

DRUGS (1)
  1. ABATACEPT [Suspect]
     Active Substance: ABATACEPT
     Indication: RHEUMATOID ARTHRITIS
     Dosage: 125 MG, QWK
     Route: 065
     Dates: start: 20150922

REACTIONS (3)
  - Fall [Unknown]
  - Rib fracture [Recovered/Resolved]
  - Laceration [Recovered/Resolved]

NARRATIVE: CASE EVENT DATE: 20170206
